FAERS Safety Report 13192290 (Version 2)
Quarter: 2017Q1

REPORT INFORMATION
  Report Type: Spontaneous
  Country: CA (occurrence: CA)
  Receive Date: 20170207
  Receipt Date: 20170214
  Transmission Date: 20170428
  Serious: Yes (Life-Threatening, Hospitalization)
  Sender: FDA-Public Use
  Company Number: CA-BAXTER-2017BAX004540

PATIENT
  Age: 20 Year
  Sex: Male
  Weight: 66 kg

DRUGS (9)
  1. ZYLOPRIM [Suspect]
     Active Substance: ALLOPURINOL
     Indication: PROPHYLAXIS
     Route: 048
     Dates: start: 20161109, end: 20161117
  2. CESAMET [Suspect]
     Active Substance: NABILONE
     Indication: PROPHYLAXIS
     Route: 048
     Dates: start: 20161110, end: 20161207
  3. TETRAHYDROCANNABINOL [Concomitant]
     Active Substance: DRONABINOL
     Indication: PRODUCT USED FOR UNKNOWN INDICATION
     Route: 065
  4. PROCYTOX (CYCLOPHOSPHAMIDE) 2000MG/VIAL [Suspect]
     Active Substance: CYCLOPHOSPHAMIDE
     Indication: CHEMOTHERAPY
     Dosage: 60 MG/KG
     Route: 042
     Dates: start: 20161217, end: 20161217
  5. INOTUZUMAB OZOGAMICIN [Suspect]
     Active Substance: INOTUZUMAB OZOGAMICIN
     Indication: ACUTE LEUKAEMIA
     Dosage: CYCLE 1DAY8 TO CYCLE 1 DAY 15,0.5 MG/M2
     Route: 042
     Dates: start: 20161117, end: 20161123
  6. PROCYTOX (CYCLOPHOSPHAMIDE) 2000MG/VIAL [Suspect]
     Active Substance: CYCLOPHOSPHAMIDE
     Dosage: 60 MG/KG
     Route: 042
     Dates: start: 20161218, end: 20161218
  7. INOTUZUMAB OZOGAMICIN [Suspect]
     Active Substance: INOTUZUMAB OZOGAMICIN
     Indication: REFRACTORY CANCER
     Dosage: CYCLE1 DAY 1,0.8 MG/M2
     Route: 042
     Dates: start: 20161110
  8. BLINATUMOMAB [Concomitant]
     Active Substance: BLINATUMOMAB
     Indication: B-CELL LYMPHOMA
     Route: 065
  9. INOTUZUMAB OZOGAMICIN [Suspect]
     Active Substance: INOTUZUMAB OZOGAMICIN
     Dosage: CYCLE 2 DAY1 TO CYCLE 2 DAY 8,0.5 MG/M2
     Route: 042
     Dates: start: 20161130, end: 20161207

REACTIONS (1)
  - Venoocclusive disease [Recovering/Resolving]

NARRATIVE: CASE EVENT DATE: 20161229
